FAERS Safety Report 24827902 (Version 2)
Quarter: 2025Q1

REPORT INFORMATION
  Report Type: Spontaneous
  Country: US (occurrence: US)
  Receive Date: 20250109
  Receipt Date: 20250114
  Transmission Date: 20250409
  Serious: No
  Sender: PFIZER
  Company Number: US-PFIZER INC-PV202500002369

PATIENT
  Age: 24 Year
  Sex: Female

DRUGS (1)
  1. ZAVZPRET [Suspect]
     Active Substance: ZAVEGEPANT HYDROCHLORIDE
     Indication: Migraine
     Dates: start: 2024, end: 2024

REACTIONS (4)
  - Headache [Unknown]
  - Burning sensation [Unknown]
  - Dysgeusia [Unknown]
  - Facial pain [Unknown]
